FAERS Safety Report 12889900 (Version 7)
Quarter: 2018Q4

REPORT INFORMATION
  Report Type: Report from Study
  Country: FR (occurrence: FR)
  Receive Date: 20161027
  Receipt Date: 20181126
  Transmission Date: 20190204
  Serious: Yes (Hospitalization)
  Sender: FDA-Public Use
  Company Number: FR-JNJFOC-20161006535

PATIENT
  Age: 85 Year
  Sex: Female
  Weight: 70 kg

DRUGS (19)
  1. ARIXTRA [Concomitant]
     Active Substance: FONDAPARINUX SODIUM
     Indication: PROPHYLAXIS
     Route: 058
     Dates: start: 20160810, end: 20160811
  2. ACETYLSALICYLIC ACID [Suspect]
     Active Substance: ASPIRIN
     Indication: THROMBOSIS PROPHYLAXIS
     Route: 048
     Dates: start: 20160812, end: 20160930
  3. COKENZEN [Concomitant]
     Active Substance: CANDESARTAN CILEXETIL\HYDROCHLOROTHIAZIDE
     Route: 048
     Dates: start: 20180212
  4. KARDEGIC [Concomitant]
     Active Substance: ASPIRIN DL-LYSINE
     Indication: CARDIAC VALVE DISEASE
     Route: 048
     Dates: end: 20160811
  5. RIVAROXABAN [Suspect]
     Active Substance: RIVAROXABAN
     Indication: THROMBOSIS PROPHYLAXIS
     Dosage: CUMULATIVE DOSE TO FIRST REACTION: 470.102997 MILLIGRAM
     Route: 048
     Dates: start: 20160812, end: 20160930
  6. PANTOPRAZOLE [Concomitant]
     Active Substance: PANTOPRAZOLE
     Indication: PROPHYLAXIS
     Route: 048
     Dates: start: 20160817
  7. LIPANOR [Concomitant]
     Active Substance: CIPROFIBRATE
     Indication: HYPERCHOLESTEROLAEMIA
     Route: 048
     Dates: end: 20160809
  8. CLOPIDOGREL [Concomitant]
     Active Substance: CLOPIDOGREL BISULFATE
     Indication: PRODUCT USED FOR UNKNOWN INDICATION
     Route: 048
     Dates: start: 20161003
  9. RIVAROXABAN [Suspect]
     Active Substance: RIVAROXABAN
     Indication: AORTIC VALVE REPLACEMENT
     Dosage: CUMULATIVE DOSE TO FIRST REACTION: 470.102997 MILLIGRAM
     Route: 048
     Dates: start: 20160812, end: 20160930
  10. TAREG [Concomitant]
     Active Substance: VALSARTAN
     Route: 048
     Dates: start: 20161003
  11. ESIDREX [Concomitant]
     Active Substance: HYDROCHLOROTHIAZIDE
     Route: 048
     Dates: start: 20160810, end: 20160816
  12. ACETYLSALICYLIC ACID [Suspect]
     Active Substance: ASPIRIN
     Indication: AORTIC VALVE REPLACEMENT
     Route: 048
     Dates: start: 20160812, end: 20160930
  13. COKENZEN [Concomitant]
     Active Substance: CANDESARTAN CILEXETIL\HYDROCHLOROTHIAZIDE
     Route: 048
     Dates: end: 20160809
  14. COKENZEN [Concomitant]
     Active Substance: CANDESARTAN CILEXETIL\HYDROCHLOROTHIAZIDE
     Route: 048
     Dates: start: 20160817, end: 20161002
  15. UVEDOSE [Concomitant]
     Active Substance: CHOLECALCIFEROL
     Indication: PROPHYLAXIS
     Route: 048
     Dates: start: 20160819
  16. TAREG [Concomitant]
     Active Substance: VALSARTAN
     Route: 048
     Dates: start: 20160810, end: 20160816
  17. ESIDREX [Concomitant]
     Active Substance: HYDROCHLOROTHIAZIDE
     Route: 048
     Dates: start: 20161003
  18. LIPANOR [Concomitant]
     Active Substance: CIPROFIBRATE
     Indication: HYPERCHOLESTEROLAEMIA
     Route: 048
     Dates: start: 20160817
  19. KARDEGIC [Concomitant]
     Active Substance: ASPIRIN DL-LYSINE
     Indication: CARDIAC VALVE DISEASE
     Route: 048
     Dates: start: 20161003, end: 201802

REACTIONS (3)
  - Dizziness [Recovered/Resolved]
  - Fall [Recovered/Resolved]
  - Manufacturing materials issue [Unknown]

NARRATIVE: CASE EVENT DATE: 20160929
